FAERS Safety Report 4381435-2 (Version None)
Quarter: 2004Q2

REPORT INFORMATION
  Report Type: 
  Country: None (occurrence: None)
  Receive Date: 20040616
  Receipt Date: 20040604
  Transmission Date: 20050107
  Serious: Yes (Other)
  Sender: FDA-Public Use
  Company Number: S04-USA-03135-01

PATIENT
  Age: 93 Year

DRUGS (3)
  1. NAMENDA [Suspect]
  2. NAMENDA [Suspect]
  3. ARICEPT [Concomitant]

REACTIONS (1)
  - FAILURE TO THRIVE [None]
